FAERS Safety Report 11641355 (Version 8)
Quarter: 2016Q1

REPORT INFORMATION
  Report Type: Report from Study
  Country: US (occurrence: US)
  Receive Date: 20151019
  Receipt Date: 20160308
  Transmission Date: 20160525
  Serious: Yes (Hospitalization, Other)
  Sender: FDA-Public Use
  Company Number: US-VERTEX PHARMACEUTICALS-2015-004497

PATIENT
  Age: 31 Year
  Sex: Male
  Weight: 52 kg

DRUGS (18)
  1. CREON [Concomitant]
     Active Substance: PANCRELIPASE AMYLASE\PANCRELIPASE LIPASE\PANCRELIPASE PROTEASE
  2. SODIUM CHLORIDE. [Concomitant]
     Active Substance: SODIUM CHLORIDE
     Dosage: 4 ML, BID
     Route: 055
  3. ORKAMBI [Suspect]
     Active Substance: IVACAFTOR\LUMACAFTOR
     Indication: CYSTIC FIBROSIS
     Dosage: UNK
     Route: 048
     Dates: start: 20151001, end: 20151004
  4. ORKAMBI [Suspect]
     Active Substance: IVACAFTOR\LUMACAFTOR
     Dosage: 200MG/125MG, BID
     Route: 048
     Dates: start: 20151005, end: 20151204
  5. BROVANA [Concomitant]
     Active Substance: ARFORMOTEROL TARTRATE
     Dosage: 2 ML, BID FOR 90 DAYS
     Route: 055
     Dates: start: 20150308
  6. OMEPRAZOLE. [Concomitant]
     Active Substance: OMEPRAZOLE
     Dosage: 1 DF, QD
     Route: 048
  7. XOPENEX [Concomitant]
     Active Substance: LEVALBUTEROL HYDROCHLORIDE
     Indication: RESPIRATORY DISORDER
     Dosage: 1 UT, PRN
     Route: 055
  8. HUMULIN N [Concomitant]
     Active Substance: INSULIN HUMAN
     Dosage: 15 UT, UNK
     Route: 058
  9. PREVIDENT 5000 BOOST [Concomitant]
  10. PULMOZYME [Concomitant]
     Active Substance: DORNASE ALFA
     Dosage: 2.5 ML, BID
     Route: 055
  11. TWOCAL HN [Concomitant]
     Dosage: 237 ML, QID
     Route: 048
  12. BETHKIS [Concomitant]
     Active Substance: TOBRAMYCIN
     Dosage: 1 DF, BID INHALE 1 VIAL VIA NEB; CYCLE 28 DAYS ON AND 28 DAYS OFF
     Route: 055
     Dates: start: 20150209
  13. MUCINEX [Concomitant]
     Active Substance: GUAIFENESIN
     Dosage: 1 DF, QD
     Route: 048
  14. VITAMIN D3 [Concomitant]
     Active Substance: CHOLECALCIFEROL
  15. CAYSTON [Concomitant]
     Active Substance: AZTREONAM
     Dosage: 1 DF, TID CYCLE ON/OFF EVERY 28 DAYS
     Route: 055
     Dates: start: 20150308
  16. IPRATROPIUM BROMIDE. [Concomitant]
     Active Substance: IPRATROPIUM BROMIDE
     Dosage: 2.5 ML, PRN
  17. MONTELUKAST [Concomitant]
     Active Substance: MONTELUKAST SODIUM
     Dosage: 1 DF, QD
     Route: 048
  18. XOPENEX HFA [Concomitant]
     Active Substance: LEVALBUTEROL TARTRATE
     Dosage: 2 PUFFS PRN
     Route: 055

REACTIONS (7)
  - Bronchiectasis [Recovered/Resolved]
  - Heart rate increased [Recovered/Resolved]
  - Pulmonary function test decreased [Recovered/Resolved]
  - Oxygen saturation decreased [Recovered/Resolved]
  - Chest discomfort [Recovered/Resolved]
  - Cough [Recovered/Resolved]
  - Dyspnoea [Recovered/Resolved]

NARRATIVE: CASE EVENT DATE: 201510
